FAERS Safety Report 9448272 (Version 2)
Quarter: 2013Q4

REPORT INFORMATION
  Report Type: Spontaneous
  Country: US (occurrence: US)
  Receive Date: 20130808
  Receipt Date: 20131016
  Transmission Date: 20140711
  Serious: No
  Sender: FDA-Public Use
  Company Number: US-009507513-1308USA000018

PATIENT
  Age: 62 Year
  Sex: Female
  Weight: 70.75 kg

DRUGS (22)
  1. VICTRELIS [Suspect]
     Indication: HEPATITIS C
     Dosage: 800 MG (4 CAPSULES), TID (EVERY 7-9HOURS) WITH FOOD
     Route: 048
     Dates: start: 20130520
  2. PEGINTRON [Suspect]
     Indication: HEPATITIS C
     Dosage: REDIPEN 0.4 ML, QW
  3. RIBAPAK [Suspect]
     Indication: HEPATITIS C
     Dosage: 1000 MG, BID
     Dates: start: 20130422, end: 20130602
  4. RIBAPAK [Suspect]
     Dosage: 600, QD
     Dates: start: 20130603
  5. ASTEPRO [Concomitant]
     Dosage: 2 SPRAYS, 2 TIMES A DAY
  6. ALLEGRA [Concomitant]
  7. VITAMIN E [Concomitant]
     Dosage: 1 CAP, ONCE A DAY
  8. OXYBUTYNIN [Concomitant]
     Dosage: EXTENDED RELEASE 1 TAB, ONCE A DAY
  9. PILOCARPINE [Concomitant]
     Dosage: FORMULATION:SOLUTION
     Route: 047
  10. LOSARTAN POTASSIUM [Concomitant]
  11. VITAMIN D (UNSPECIFIED) [Concomitant]
     Dosage: 1000 UNIT
  12. DEXILANT [Concomitant]
  13. HEMAX TAB [Concomitant]
  14. BIOCODEX FLORASTOR [Concomitant]
     Dosage: 1 CAP, 2 TIMES A DAY
  15. FLUTICASONE [Concomitant]
     Dosage: 1 SPRAY, ONCE A DAY
  16. ZOLPIDEM TARTRATE [Concomitant]
     Dosage: 1 TAB, ONCE A DAY (AT BEDTIME)
  17. DORZOLAMIDE HYDROCHLORIDE (+) TIMOLOL MALEATE [Concomitant]
     Dosage: 1 GTT, 2 TIMES A DAY
     Route: 047
  18. CALCIUM (UNSPECIFIED) (+) VITAMIN D (UNSPECIFIED) [Concomitant]
     Dosage: 200 UNITS TABLET 1 TAB, ONCE A DAY
  19. FEXOFENADINE HYDROCHLORIDE [Concomitant]
     Dosage: 1 TAB, ONCE A DAY
  20. HYDROCHLOROTHIAZIDE (+) LOSARTAN POTASSIUM [Concomitant]
     Dosage: 0.5 TAB, ONCE A DAY
  21. CHOLECALCIFEROL [Concomitant]
     Dosage: 1 TAB, ONCE A DAY
  22. PATANASE [Concomitant]
     Dosage: 2 SPRAYS, 2 TIMES A DAY

REACTIONS (11)
  - Tongue pigmentation [Unknown]
  - Generalised erythema [Recovered/Resolved]
  - Anaemia [Recovering/Resolving]
  - Fatigue [Unknown]
  - Weight decreased [Unknown]
  - Nausea [Unknown]
  - Dysgeusia [Unknown]
  - Stomatitis [Unknown]
  - Dysgeusia [Unknown]
  - Rash [Unknown]
  - Pruritus [Unknown]
